FAERS Safety Report 5840283-4 (Version None)
Quarter: 2008Q3

REPORT INFORMATION
  Report Type: 
  Country: None (occurrence: None)
  Receive Date: 20080807
  Receipt Date: 20080807
  Transmission Date: 20090109
  Serious: Yes (Other)
  Sender: FDA-Public Use
  Company Number: None

PATIENT
  Age: 50 Year
  Sex: Male
  Weight: 104.3273 kg

DRUGS (2)
  1. LISINOPRIL [Suspect]
     Indication: HYPERTENSION
     Dosage: 10 MG DAILY
     Dates: start: 20070525
  2. CLONIDINE [Suspect]
     Indication: HYPERTENSION
     Dosage: .04 DAILY
     Dates: start: 20070525

REACTIONS (2)
  - DIABETES MELLITUS [None]
  - PANCREATIC DISORDER [None]
